FAERS Safety Report 11330038 (Version 2)
Quarter: 2015Q4

REPORT INFORMATION
  Report Type: Spontaneous
  Country: FR (occurrence: FR)
  Receive Date: 20150803
  Receipt Date: 20151102
  Transmission Date: 20160304
  Serious: Yes (Hospitalization)
  Sender: FDA-Public Use
  Company Number: FR-PFIZER INC-2015252523

PATIENT
  Age: 31 Year
  Sex: Female
  Weight: 60 kg

DRUGS (5)
  1. CYTOTEC [Suspect]
     Active Substance: MISOPROSTOL
     Indication: ABORTION SPONTANEOUS
     Dosage: 400 ?G, 1X/DAY
     Route: 048
     Dates: start: 20150511, end: 20150511
  2. DAFALGAN CODEINE [Concomitant]
     Active Substance: ACETAMINOPHEN\CODEINE PHOSPHATE
     Dosage: 2 DF, 1X/DAY
     Route: 048
     Dates: start: 20150512, end: 20150512
  3. DAFALGAN CODEINE [Concomitant]
     Active Substance: ACETAMINOPHEN\CODEINE PHOSPHATE
     Dosage: 2 DF, 1X/DAY
     Route: 048
     Dates: start: 20150511, end: 20150511
  4. CYTOTEC [Suspect]
     Active Substance: MISOPROSTOL
     Dosage: 400 ?G, 2X/DAY
     Route: 048
     Dates: start: 20150512, end: 20150512
  5. CYTOTEC [Suspect]
     Active Substance: MISOPROSTOL
     Dosage: 400 ?G, 2X/DAY
     Route: 048
     Dates: start: 20150513, end: 20150513

REACTIONS (7)
  - Product use issue [Unknown]
  - Transfusion [Recovered/Resolved]
  - Uterine dilation and curettage [Recovered/Resolved with Sequelae]
  - Pelvic pain [Recovered/Resolved]
  - Transaminases increased [Unknown]
  - Uterine haemorrhage [Recovered/Resolved]
  - Haemorrhagic anaemia [Unknown]

NARRATIVE: CASE EVENT DATE: 20150511
